FAERS Safety Report 11615815 (Version 4)
Quarter: 2016Q1

REPORT INFORMATION
  Report Type: Spontaneous
  Country: JP (occurrence: JP)
  Receive Date: 20151009
  Receipt Date: 20160126
  Transmission Date: 20160525
  Serious: Yes (Hospitalization, Other)
  Sender: FDA-Public Use
  Company Number: JP-ELI_LILLY_AND_COMPANY-JP201509002847

PATIENT
  Age: 58 Year
  Sex: Male
  Weight: 45.2 kg

DRUGS (5)
  1. MUCOSTA [Concomitant]
     Active Substance: REBAMIPIDE
  2. CYRAMZA [Suspect]
     Active Substance: RAMUCIRUMAB
     Indication: GASTRIC CANCER
     Dosage: UNK
     Route: 042
     Dates: start: 20150828, end: 20150828
  3. LYRICA [Concomitant]
     Active Substance: PREGABALIN
  4. CELECOX [Concomitant]
     Active Substance: CELECOXIB
  5. FENTANYL. [Concomitant]
     Active Substance: FENTANYL

REACTIONS (5)
  - Pyrexia [Not Recovered/Not Resolved]
  - Hepatic failure [Unknown]
  - Biliary tract disorder [Unknown]
  - Hyperbilirubinaemia [Not Recovered/Not Resolved]
  - Malignant neoplasm progression [Unknown]

NARRATIVE: CASE EVENT DATE: 20150904
